FAERS Safety Report 18168978 (Version 2)
Quarter: 2020Q4

REPORT INFORMATION
  Report Type: Spontaneous
  Country: DE (occurrence: DE)
  Receive Date: 20200818
  Receipt Date: 20201110
  Transmission Date: 20210113
  Serious: Yes (Other)
  Sender: FDA-Public Use
  Company Number: DE-NEUROCRINE BIOSCIENCES INC.-2020NBI03065

PATIENT
  Age: 65 Year
  Sex: Female

DRUGS (8)
  1. ONGENTYS [Suspect]
     Active Substance: OPICAPONE
     Dosage: UNKNOWN
     Route: 065
     Dates: start: 20200702, end: 202008
  2. DEKRISTOL [Concomitant]
     Active Substance: CHOLECALCIFEROL
     Route: 048
  3. TROMCARDIN COMPLEX [Concomitant]
     Active Substance: DIETARY SUPPLEMENT
     Dosage: AT 12 AM
     Route: 048
  4. MANYPER [Concomitant]
     Dosage: TO BE TAKEN IF NEEDED AT A DOSE OF HALF TABLET AT 4 AM AND 11 PM
     Route: 048
  5. REQUIP [Concomitant]
     Active Substance: ROPINIROLE HYDROCHLORIDE
     Dosage: AT 11 PM
     Route: 048
  6. AZILECT [Concomitant]
     Active Substance: RASAGILINE MESYLATE
     Dosage: AT 7 AM
     Route: 048
  7. ONGENTYS [Suspect]
     Active Substance: OPICAPONE
     Indication: PRODUCT USED FOR UNKNOWN INDICATION
     Dosage: (STOPPED 16 DAYS AFTER START DUE TO SUPPLY ISSUES)
     Route: 065
     Dates: start: 202002, end: 2020
  8. MAGNESIOCARD [Concomitant]
     Active Substance: MAGNESIUM ASPARTATE HYDROCHLORIDE
     Dosage: AT 7 PM
     Route: 048

REACTIONS (5)
  - Musculoskeletal stiffness [Recovering/Resolving]
  - Product supply issue [Unknown]
  - Therapy interrupted [Unknown]
  - Immobile [Recovering/Resolving]
  - Erythema [Recovering/Resolving]

NARRATIVE: CASE EVENT DATE: 2020
